FAERS Safety Report 11510616 (Version 1)
Quarter: 2015Q3

REPORT INFORMATION
  Report Type: Spontaneous
  Country: US (occurrence: US)
  Receive Date: 20150915
  Receipt Date: 20150915
  Transmission Date: 20151125
  Serious: No
  Sender: FDA-Public Use
  Company Number: US-JNJFOC-20150716061

PATIENT
  Age: 63 Year
  Sex: Female
  Weight: 65.77 kg

DRUGS (1)
  1. TYLENOL EXTRA STRENGTH [Suspect]
     Active Substance: ACETAMINOPHEN
     Indication: MIGRAINE
     Dosage: 2 TO 3 TABLETS AS NEEDED THROUGHT OUT THE DAY; TOTAL OF 6 CAPLETS PER DAY IF NEEDED
     Route: 048

REACTIONS (2)
  - Incorrect dose administered [Unknown]
  - Product use issue [Unknown]
